FAERS Safety Report 4917199-0 (Version None)
Quarter: 2006Q1

REPORT INFORMATION
  Report Type: 
  Country: None (occurrence: None)
  Receive Date: 20060221
  Receipt Date: 20060213
  Transmission Date: 20060701
  Serious: Yes (Other)
  Sender: FDA-Public Use
  Company Number: ES-JNJFOC-20050704581

PATIENT
  Sex: Female

DRUGS (4)
  1. REMICADE [Suspect]
     Route: 042
  2. REMICADE [Suspect]
     Dosage: TREATMENT RECEIVED 4 MONTHS AGO
     Route: 042
  3. REMICADE [Suspect]
     Route: 042
  4. PRE-MEDICATION NOS [Concomitant]

REACTIONS (2)
  - BACTERIAL CULTURE POSITIVE [None]
  - TUBERCULOSIS [None]
